FAERS Safety Report 24963093 (Version 2)
Quarter: 2025Q1

REPORT INFORMATION
  Report Type: Report from Study
  Country: US (occurrence: US)
  Receive Date: 20250213
  Receipt Date: 20250313
  Transmission Date: 20250409
  Serious: Yes (Other)
  Sender: UCB
  Company Number: US-UCBSA-2024065697

PATIENT
  Sex: Male
  Weight: 124.73 kg

DRUGS (23)
  1. ZILUCOPLAN [Suspect]
     Active Substance: ZILUCOPLAN
     Indication: Myasthenia gravis
     Dates: start: 20241126
  2. ZILUCOPLAN [Suspect]
     Active Substance: ZILUCOPLAN
     Dosage: 32.4 MILLIGRAM, ONCE DAILY (QD)
     Route: 058
  3. ZILUCOPLAN [Suspect]
     Active Substance: ZILUCOPLAN
     Dosage: 32.4 MILLIGRAM, ONCE DAILY (QD)
     Route: 058
  4. PREDNISONE [Suspect]
     Active Substance: PREDNISONE
     Indication: Product used for unknown indication
  5. PREDNISONE [Suspect]
     Active Substance: PREDNISONE
  6. PREDNISONE [Suspect]
     Active Substance: PREDNISONE
  7. PREDNISONE [Suspect]
     Active Substance: PREDNISONE
  8. PROPRANOLOL [Concomitant]
     Active Substance: PROPRANOLOL HYDROCHLORIDE
     Indication: Product used for unknown indication
  9. TAMSULOSIN [Concomitant]
     Active Substance: TAMSULOSIN
     Indication: Product used for unknown indication
  10. ATORVASTATIN [Concomitant]
     Active Substance: ATORVASTATIN
     Indication: Product used for unknown indication
  11. MECLIZINE [Concomitant]
     Active Substance: MECLIZINE HYDROCHLORIDE
     Indication: Product used for unknown indication
  12. ALBUTEROL SULFATE [Concomitant]
     Active Substance: ALBUTEROL SULFATE
     Indication: Product used for unknown indication
  13. VITAMINS NOS [Concomitant]
     Active Substance: VITAMINS
     Indication: Product used for unknown indication
  14. FISH OIL [Concomitant]
     Active Substance: FISH OIL
     Indication: Product used for unknown indication
  15. OMEPRAZOLE [Concomitant]
     Active Substance: OMEPRAZOLE
     Indication: Product used for unknown indication
  16. DIETARY SUPPLEMENT [Concomitant]
     Active Substance: DIETARY SUPPLEMENT
     Indication: Product used for unknown indication
  17. RETINOL [Concomitant]
     Active Substance: RETINOL
     Indication: Product used for unknown indication
  18. VITAMIN C [Concomitant]
     Active Substance: ASCORBIC ACID
     Indication: Product used for unknown indication
  19. VITAMIN D3 [Concomitant]
     Active Substance: CHOLECALCIFEROL
     Indication: Product used for unknown indication
  20. FLAXSEED [Concomitant]
     Active Substance: FLAX SEED
     Indication: Product used for unknown indication
  21. MAGNESIUM [Concomitant]
     Active Substance: MAGNESIUM
     Indication: Product used for unknown indication
  22. POTASSIUM [Concomitant]
     Active Substance: POTASSIUM
     Indication: Product used for unknown indication
  23. DIPHENHYDRAMINE [Concomitant]
     Active Substance: DIPHENHYDRAMINE
     Indication: Product used for unknown indication

REACTIONS (5)
  - Myasthenia gravis [Not Recovered/Not Resolved]
  - Injection site rash [Not Recovered/Not Resolved]
  - Wrong technique in product usage process [Unknown]
  - Product dose omission issue [Unknown]
  - Drug ineffective [Unknown]

NARRATIVE: CASE EVENT DATE: 20240101
